FAERS Safety Report 7758384-2 (Version None)
Quarter: 2011Q3

REPORT INFORMATION
  Report Type: 
  Country: None (occurrence: None)
  Receive Date: 20110919
  Receipt Date: 20110913
  Transmission Date: 20111222
  Serious: No
  Sender: FDA-Public Use
  Company Number: US-PFIZER INC-2011216902

PATIENT
  Sex: Female

DRUGS (3)
  1. DIAZEPAM [Interacting]
     Indication: TINNITUS
     Dosage: UNKNOWN DOSE DAILY ALTERNATIVELY
  2. LYRICA [Suspect]
     Indication: BACK DISORDER
     Dosage: UNK
     Dates: start: 20110901, end: 20110901
  3. CLONAZEPAM [Interacting]
     Indication: TINNITUS
     Dosage: UNKNOWN DOSE DAILY ALTERNATIVELY

REACTIONS (4)
  - DRUG INTERACTION [None]
  - DRUG INEFFECTIVE [None]
  - TINNITUS [None]
  - INSOMNIA [None]
